FAERS Safety Report 7288913-7 (Version None)
Quarter: 2011Q1

REPORT INFORMATION
  Report Type: 
  Country: None (occurrence: None)
  Receive Date: 20110211
  Receipt Date: 20110210
  Transmission Date: 20110831
  Serious: Yes (Hospitalization)
  Sender: FDA-Public Use
  Company Number: DE-ABBOTT-11P-062-0704191-00

PATIENT
  Sex: Male
  Weight: 95 kg

DRUGS (5)
  1. ISONIAZID [Concomitant]
     Indication: PRODUCT USED FOR UNKNOWN INDICATION
  2. HUMIRA [Suspect]
     Indication: CROHN'S DISEASE
     Route: 058
     Dates: start: 20100401, end: 20100401
  3. HUMIRA [Suspect]
     Route: 058
     Dates: end: 20101229
  4. MIRTAZAPIN [Concomitant]
     Indication: PRODUCT USED FOR UNKNOWN INDICATION
  5. AZATHIOPRINE [Concomitant]
     Indication: CROHN'S DISEASE
     Dosage: 2-2.5 MG/KG BODY WEIGHT
     Dates: start: 20100201

REACTIONS (1)
  - SMALL INTESTINAL STENOSIS [None]
